FAERS Safety Report 23096404 (Version 1)
Quarter: 2023Q4

REPORT INFORMATION
  Report Type: Spontaneous
  Country: US (occurrence: US)
  Receive Date: 20231023
  Receipt Date: 20231023
  Transmission Date: 20240109
  Serious: No
  Sender: FDA-Public Use
  Company Number: US-BRISTOL-MYERS SQUIBB COMPANY-2023-122056

PATIENT
  Age: 66 Year

DRUGS (3)
  1. ELIQUIS [Suspect]
     Active Substance: APIXABAN
     Indication: Vascular occlusion
     Route: 048
     Dates: start: 20230220
  2. MEKTOVI [Concomitant]
     Active Substance: BINIMETINIB
     Indication: Product used for unknown indication
     Dates: start: 20230822
  3. ENCORAFENIB [Concomitant]
     Active Substance: ENCORAFENIB
     Indication: Product used for unknown indication
     Route: 048
     Dates: start: 20230626

REACTIONS (1)
  - Off label use [Unknown]

NARRATIVE: CASE EVENT DATE: 20230220
